FAERS Safety Report 23568910 (Version 2)
Quarter: 2025Q1

REPORT INFORMATION
  Report Type: Report from Study
  Country: US (occurrence: US)
  Receive Date: 20240227
  Receipt Date: 20250130
  Transmission Date: 20250409
  Serious: No
  Sender: HRA PHARMA
  Company Number: US-ORG100014127-2023000715

PATIENT
  Age: 59 Year
  Sex: Female

DRUGS (28)
  1. METOPIRONE [Suspect]
     Active Substance: METYRAPONE
     Indication: Pituitary-dependent Cushing^s syndrome
     Dosage: 250 MG: 1 CAPSULE 04 TIMES DAILY
     Route: 048
     Dates: start: 20211026
  2. ATORVASTATIN TAB 20MG [Concomitant]
     Indication: Product used for unknown indication
  3. CLOPIDOGREL TAB 75MG [Concomitant]
     Indication: Product used for unknown indication
  4. GABAPENTIN [Concomitant]
     Active Substance: GABAPENTIN
     Indication: Product used for unknown indication
  5. GABAPENTIN CAP 400MG [Concomitant]
     Indication: Product used for unknown indication
  6. LEVOTHYROXIN TAB 125MCG [Concomitant]
     Indication: Product used for unknown indication
  7. LEVOTHYROXIN TAB 88MCG [Concomitant]
     Indication: Product used for unknown indication
  8. LISINOPRIL [Concomitant]
     Active Substance: LISINOPRIL
     Indication: Product used for unknown indication
  9. METOPROLOL SUCCINATE [Concomitant]
     Active Substance: METOPROLOL SUCCINATE
     Indication: Product used for unknown indication
  10. PLAVIX [Concomitant]
     Active Substance: CLOPIDOGREL BISULFATE
     Indication: Product used for unknown indication
  11. SPIRONOLACTONE [Concomitant]
     Active Substance: SPIRONOLACTONE
     Indication: Product used for unknown indication
  12. SPIRONOLACTONE [Concomitant]
     Active Substance: SPIRONOLACTONE
     Indication: Product used for unknown indication
  13. TOPAMAX TAB 100MG [Concomitant]
     Indication: Product used for unknown indication
  14. VERAPAMIL CAP 120MG ER [Concomitant]
     Indication: Product used for unknown indication
  15. VERAPAMIL TAB 240MG ER [Concomitant]
     Indication: Product used for unknown indication
  16. CICLOPIROX SOL 8% [Concomitant]
     Indication: Product used for unknown indication
  17. CLOTRIMAZOLE TRO 10MG [Concomitant]
     Indication: Product used for unknown indication
  18. DICLOFENAC TAB 75MG DR [Concomitant]
     Indication: Product used for unknown indication
  19. EZETIMIBE [Concomitant]
     Active Substance: EZETIMIBE
     Indication: Product used for unknown indication
  20. FLUCONAZOLE TAB 150MG [Concomitant]
     Indication: Product used for unknown indication
  21. METFORMIN TAB 1000MG [Concomitant]
     Indication: Product used for unknown indication
  22. OMEGA-3-ACID CAP 1GM [Concomitant]
     Indication: Product used for unknown indication
  23. ONDANSETRON [Concomitant]
     Active Substance: ONDANSETRON
     Indication: Product used for unknown indication
  24. OXYCOD/APAP TAB 5-325MG [Concomitant]
     Indication: Product used for unknown indication
  25. PAROXETINE TAB 10MG [Concomitant]
     Indication: Product used for unknown indication
  26. PREDNISONE [Concomitant]
     Active Substance: PREDNISONE
     Indication: Product used for unknown indication
  27. PROCHLORPER TAB 10MG [Concomitant]
     Indication: Product used for unknown indication
  28. TRUE METRIX TES GLUCOSE [Concomitant]
     Indication: Product used for unknown indication

REACTIONS (1)
  - Off label use [Unknown]

NARRATIVE: CASE EVENT DATE: 20211026
